FAERS Safety Report 8598123 (Version 3)
Quarter: 2013Q4

REPORT INFORMATION
  Report Type: Spontaneous
  Country: US (occurrence: US)
  Receive Date: 20120605
  Receipt Date: 20131129
  Transmission Date: 20140711
  Serious: Yes (Hospitalization, Disabling)
  Sender: FDA-Public Use
  Company Number: US-ASTRAZENECA-2012SE34475

PATIENT
  Age: 523 Month
  Sex: Female
  Weight: 108.9 kg

DRUGS (25)
  1. NEXIUM [Suspect]
     Indication: GASTROOESOPHAGEAL REFLUX DISEASE
     Route: 048
  2. NEXIUM [Suspect]
     Indication: GASTROOESOPHAGEAL REFLUX DISEASE
     Route: 048
  3. NEXIUM [Suspect]
     Indication: DYSPEPSIA
     Route: 048
  4. NEXIUM [Suspect]
     Indication: GASTROOESOPHAGEAL REFLUX DISEASE
     Route: 048
     Dates: start: 2004
  5. NEXIUM [Suspect]
     Indication: GASTROOESOPHAGEAL REFLUX DISEASE
     Route: 048
     Dates: start: 2004
  6. NEXIUM [Suspect]
     Indication: DYSPEPSIA
     Route: 048
     Dates: start: 2004
  7. PRILOSEC [Suspect]
     Indication: DYSPEPSIA
     Route: 048
     Dates: end: 200407
  8. PRILOSEC OTC [Suspect]
     Dosage: TWICE DAILY TO THREE TIMES A DAY
     Route: 048
     Dates: start: 200407
  9. TAGAMET [Concomitant]
  10. MYLANTA II [Concomitant]
  11. MAALOX PLUS [Concomitant]
  12. GAVISCON [Concomitant]
  13. ZANTAC [Concomitant]
     Indication: DYSPEPSIA
     Dosage: 2 DAILY
  14. ZANTAC [Concomitant]
     Indication: GASTROOESOPHAGEAL REFLUX DISEASE
     Dosage: 2 DAILY
  15. ZANTAC [Concomitant]
     Indication: GASTROOESOPHAGEAL REFLUX DISEASE
     Dosage: 2 DAILY
  16. PEPTO [Concomitant]
  17. TUMS [Concomitant]
     Dosage: 1-2 TABLETS EVERY 4-6 HOURS
  18. ROLAIDS [Concomitant]
  19. VITAMIN [Concomitant]
     Dosage: 1 DAILY
  20. FISH OIL [Concomitant]
  21. PREMARIN [Concomitant]
     Dosage: 1 DAILY
  22. PREVACID [Concomitant]
  23. LIPITOR [Concomitant]
  24. CELEBREX [Concomitant]
  25. ZYRTEC [Concomitant]

REACTIONS (14)
  - Cardiac disorder [Unknown]
  - Ankle fracture [Unknown]
  - Carpal tunnel syndrome [Unknown]
  - Cataract [Unknown]
  - Osteoporosis [Unknown]
  - Angina pectoris [Unknown]
  - Arthritis [Unknown]
  - Bone pain [Unknown]
  - Calcium deficiency [Unknown]
  - Vitamin D deficiency [Unknown]
  - Back pain [Unknown]
  - Intervertebral disc degeneration [Unknown]
  - Fibula fracture [Unknown]
  - Depression [Unknown]
